FAERS Safety Report 5080619-8 (Version None)
Quarter: 2006Q3

REPORT INFORMATION
  Report Type: 
  Country: None (occurrence: None)
  Receive Date: 20060814
  Receipt Date: 20060814
  Transmission Date: 20061208
  Serious: No
  Sender: FDA-Public Use
  Company Number: None

PATIENT
  Sex: Female
  Weight: 42 kg

DRUGS (4)
  1. VIVAGLOBIN [Suspect]
     Indication: COMBINED IMMUNODEFICIENCY
     Dosage: 4.5 GM /30 ML S5 WEEKLY SC
     Route: 058
     Dates: start: 20060801
  2. VIVAGLOBIN [Suspect]
     Indication: COMBINED IMMUNODEFICIENCY
     Dosage: 4.5 GM /30 ML S5 WEEKLY SC
     Route: 058
     Dates: start: 20060808
  3. VIVAGLOBIN [Suspect]
  4. VIVAGLOBIN [Suspect]

REACTIONS (5)
  - DISCOMFORT [None]
  - INSOMNIA [None]
  - PAIN [None]
  - PRURITUS [None]
  - SWELLING [None]
